FAERS Safety Report 9401870 (Version 2)
Quarter: 2013Q4

REPORT INFORMATION
  Report Type: Report from Study
  Country: BE (occurrence: BE)
  Receive Date: 20130716
  Receipt Date: 20131209
  Transmission Date: 20140711
  Serious: Yes (Hospitalization)
  Sender: FDA-Public Use
  Company Number: BE-ROCHE-1247554

PATIENT
  Age: 65 Year
  Sex: Female

DRUGS (3)
  1. TRASTUZUMAB EMTANSINE [Suspect]
     Indication: BREAST CANCER
     Dosage: DATE OF LAST INFUSION 02/JUL/2013 AT A DOSE OF 3.6 MG/KG CYCLE 7
     Route: 065
     Dates: start: 20130208
  2. TRASTUZUMAB [Suspect]
     Indication: BREAST CANCER
     Route: 065
     Dates: start: 20130201
  3. ZIRCONIUM-89 [Suspect]
     Indication: BREAST CANCER
     Route: 065
     Dates: start: 20130201

REACTIONS (1)
  - Cerebrovascular accident [Recovered/Resolved]
